FAERS Safety Report 8176063-7 (Version None)
Quarter: 2012Q1

REPORT INFORMATION
  Report Type: 
  Country: None (occurrence: None)
  Receive Date: 20120301
  Receipt Date: 20120229
  Transmission Date: 20120608
  Serious: No
  Sender: FDA-Public Use
  Company Number: US-PFIZER INC-2012054440

PATIENT
  Age: 28 Year
  Sex: Male
  Weight: 54.422 kg

DRUGS (1)
  1. ZOLOFT [Suspect]
     Indication: POST-TRAUMATIC STRESS DISORDER
     Dosage: 100 MG, DAILY

REACTIONS (1)
  - DRUG SCREEN FALSE POSITIVE [None]
